FAERS Safety Report 10575549 (Version 2)
Quarter: 2015Q1

REPORT INFORMATION
  Report Type: Spontaneous
  Country: US (occurrence: US)
  Receive Date: 20141111
  Receipt Date: 20150128
  Transmission Date: 20150720
  Serious: No
  Sender: FDA-Public Use
  Company Number: US-BAYER-2014-162728

PATIENT
  Age: 62 Year
  Sex: Female

DRUGS (1)
  1. FINACEA [Suspect]
     Active Substance: AZELAIC ACID
     Indication: ROSACEA

REACTIONS (5)
  - Application site swelling [None]
  - Application site erythema [None]
  - Application site pain [None]
  - Pain [None]
  - Application site irritation [None]
